FAERS Safety Report 5052022-8 (Version None)
Quarter: 2006Q3

REPORT INFORMATION
  Report Type: 
  Country: None (occurrence: None)
  Receive Date: 20060711
  Receipt Date: 20060626
  Transmission Date: 20061208
  Serious: Yes (Hospitalization)
  Sender: FDA-Public Use
  Company Number: 8015291

PATIENT
  Age: 3 Year
  Sex: Female
  Weight: 12 kg

DRUGS (2)
  1. KEPPRA [Suspect]
     Indication: PARTIAL SEIZURES
     Dosage: 300 MG 2/D
     Dates: start: 20051201
  2. OXCARBAZEPINE [Suspect]
     Indication: PARTIAL SEIZURES
     Dosage: 480 MG/D
     Dates: start: 20030101

REACTIONS (5)
  - ABDOMINAL PAIN [None]
  - ANURIA [None]
  - FEBRILE INFECTION [None]
  - HEPATIC ENZYME INCREASED [None]
  - URINARY RETENTION [None]
